FAERS Safety Report 4315594-4 (Version None)
Quarter: 2004Q1

REPORT INFORMATION
  Report Type: 
  Country: None (occurrence: None)
  Receive Date: 20040309
  Receipt Date: 20040223
  Transmission Date: 20041129
  Serious: Yes (Other)
  Sender: FDA-Public Use
  Company Number: US_0402101065

PATIENT
  Age: 25 Year
  Sex: Male

DRUGS (3)
  1. STRATTERA [Suspect]
     Indication: ATTENTION DEFICIT/HYPERACTIVITY DISORDER
     Dosage: 40 MG/ 1 DAY
  2. ZYPREXA [Concomitant]
  3. ANTI-DEPRESANT [Concomitant]

REACTIONS (1)
  - CONVULSION [None]
